FAERS Safety Report 15765893 (Version 2)
Quarter: 2019Q1

REPORT INFORMATION
  Report Type: Other
  Country: FR (occurrence: FR)
  Receive Date: 20181227
  Receipt Date: 20190116
  Transmission Date: 20190417
  Serious: Yes (Other)
  Sender: FDA-Public Use
  Company Number: FR-HQ SPECIALTY-FR-2018INT000290

PATIENT

DRUGS (15)
  1. KETAMINE [Suspect]
     Active Substance: KETAMINE
     Dosage: FROM 10-3 TO PURE
     Route: 065
     Dates: start: 20181113
  2. PROPOFOL. [Suspect]
     Active Substance: PROPOFOL
     Dosage: UNK
     Route: 041
     Dates: start: 20181001, end: 20181001
  3. LIDOCAINE. [Suspect]
     Active Substance: LIDOCAINE
     Dosage: PT, IDR 10-1, PURE
     Route: 065
  4. ATARAX [Concomitant]
     Active Substance: HYDROXYZINE HYDROCHLORIDE
     Indication: PRODUCT USED FOR UNKNOWN INDICATION
     Dosage: UNK
     Route: 048
  5. LIDOCAINE. [Suspect]
     Active Substance: LIDOCAINE
     Indication: ANAESTHESIA
     Dosage: UNK
     Route: 041
     Dates: start: 20181001, end: 20181001
  6. TRACRIUM [Suspect]
     Active Substance: ATRACURIUM BESYLATE
     Dosage: PURE PT, IDR 0.01MG/ML, 0.1MG/ML
     Route: 065
     Dates: start: 20181113
  7. CEFAZOLINE                         /00288502/ [Suspect]
     Active Substance: CEFAZOLIN SODIUM
     Dosage: PT 20MG/L : 3MM, IDR 0.02MG/ML, 0.2MG/ML, 2MG/L
     Route: 065
     Dates: start: 20181113
  8. KETAMINE [Suspect]
     Active Substance: KETAMINE
     Indication: ANAESTHESIA
     Dosage: UNK
     Route: 041
     Dates: start: 20181001, end: 20181001
  9. KETAMINE [Suspect]
     Active Substance: KETAMINE
     Dosage: UNK
     Route: 041
     Dates: start: 20181001, end: 20181001
  10. TRACRIUM [Suspect]
     Active Substance: ATRACURIUM BESYLATE
     Indication: ANAESTHESIA
     Dosage: UNK
     Route: 041
     Dates: start: 20181001, end: 20181001
  11. DEXMEDETOMIDINE HYDROCHLORIDE. [Suspect]
     Active Substance: DEXMEDETOMIDINE HYDROCHLORIDE
     Indication: PRODUCT USED FOR UNKNOWN INDICATION
     Dosage: STRENGTH: 100 MCG/ML
     Route: 041
     Dates: start: 20181001, end: 20181001
  12. PROPOFOL. [Suspect]
     Active Substance: PROPOFOL
     Indication: ANAESTHESIA
     Dosage: UNK
     Route: 041
     Dates: start: 20181001, end: 20181001
  13. PROPOFOL. [Suspect]
     Active Substance: PROPOFOL
     Dosage: PT, IDR 10-1, PURE
     Route: 065
  14. CEFAZOLINE                         /00288502/ [Suspect]
     Active Substance: CEFAZOLIN SODIUM
     Indication: ANTIBIOTIC PROPHYLAXIS
     Dosage: UNK
     Route: 041
     Dates: start: 20181001, end: 20181001
  15. AVLOCARDYL                         /00030001/ [Concomitant]
     Active Substance: PROPRANOLOL HYDROCHLORIDE
     Indication: PRODUCT USED FOR UNKNOWN INDICATION
     Dosage: UNK
     Route: 048

REACTIONS (1)
  - Anaphylactic shock [Recovered/Resolved]

NARRATIVE: CASE EVENT DATE: 20181001
